FAERS Safety Report 5385768-2 (Version None)
Quarter: 2007Q3

REPORT INFORMATION
  Report Type: 
  Country: None (occurrence: None)
  Receive Date: 20070712
  Receipt Date: 20070630
  Transmission Date: 20080115
  Serious: Yes (Other)
  Sender: FDA-Public Use
  Company Number: US-PFIZER INC-2007055794

PATIENT
  Sex: Female

DRUGS (2)
  1. CHANTIX [Suspect]
     Indication: SMOKING CESSATION THERAPY
     Dates: start: 20070301, end: 20070601
  2. XANAX [Concomitant]

REACTIONS (9)
  - ACTIVITIES OF DAILY LIVING IMPAIRED [None]
  - ANXIETY [None]
  - CONSTIPATION [None]
  - CRYING [None]
  - FEAR [None]
  - FEELING ABNORMAL [None]
  - MENTAL IMPAIRMENT [None]
  - POOR QUALITY SLEEP [None]
  - WEIGHT INCREASED [None]
